FAERS Safety Report 8214234-1 (Version None)
Quarter: 2012Q1

REPORT INFORMATION
  Report Type: 
  Country: None (occurrence: None)
  Receive Date: 20120316
  Receipt Date: 20120307
  Transmission Date: 20120608
  Serious: Yes (Other)
  Sender: FDA-Public Use
  Company Number: US-BAYER-2012-001205

PATIENT
  Age: 34 Year
  Sex: Female
  Weight: 68.027 kg

DRUGS (6)
  1. DROSPIRENONE AND ETHINYL ESTRADIOL [Suspect]
     Indication: CONTRACEPTION
     Dosage: UNK
     Dates: start: 20101101, end: 20101201
  2. YAZ [Suspect]
     Indication: CONTRACEPTION
     Dosage: UNK
     Dates: start: 20080701, end: 20090101
  3. DEXILANT [Concomitant]
     Dosage: UNK UNK, ONCE DAILY
     Dates: start: 20110101
  4. NEXIUM [Concomitant]
     Dosage: UNK
     Dates: start: 20091120
  5. OMEPRAZOLE [Concomitant]
     Dosage: UNK
     Dates: start: 20090923
  6. DEXILANT [Concomitant]
     Indication: GASTROOESOPHAGEAL REFLUX DISEASE
     Dosage: UNK
     Dates: start: 20080218, end: 20101217

REACTIONS (10)
  - ABDOMINAL DISCOMFORT [None]
  - EMOTIONAL DISTRESS [None]
  - DYSPEPSIA [None]
  - PAIN [None]
  - NERVOUSNESS [None]
  - BILIARY DYSKINESIA [None]
  - DEPRESSION [None]
  - INJURY [None]
  - ABDOMINAL PAIN UPPER [None]
  - FEAR OF DEATH [None]
